FAERS Safety Report 22307431 (Version 3)
Quarter: 2023Q2

REPORT INFORMATION
  Report Type: Report from Study
  Country: NL (occurrence: NL)
  Receive Date: 20230511
  Receipt Date: 20230612
  Transmission Date: 20230722
  Serious: Yes (Death, Hospitalization, Other)
  Sender: FDA-Public Use
  Company Number: NL-Clinigen Group PLC/ Clinigen Healthcare Ltd-NL-CLGN-23-00176

PATIENT
  Age: 61 Year
  Sex: Female

DRUGS (9)
  1. ACYCLOVIR [Suspect]
     Active Substance: ACYCLOVIR
     Indication: Oral herpes
     Dosage: UNK
     Route: 065
  2. ACYCLOVIR [Suspect]
     Active Substance: ACYCLOVIR
     Indication: Herpes simplex
  3. FLUDARABINE [Suspect]
     Active Substance: FLUDARABINE PHOSPHATE
     Indication: Chronic myelomonocytic leukaemia
     Dosage: RECEIVED FLAMSA-RIC REGIMEN
     Route: 065
  4. CYTARABINE [Suspect]
     Active Substance: CYTARABINE
     Indication: Chronic myelomonocytic leukaemia
     Dosage: RECEIVED FLAMSA-RIC REGIMEN
     Route: 065
  5. CYCLOPHOSPHAMIDE [Suspect]
     Active Substance: CYCLOPHOSPHAMIDE
     Indication: Chronic myelomonocytic leukaemia
     Dosage: RECEIVED FLAMSA-RIC REGIMEN; HIGH DOSE
     Route: 065
  6. FOSCARNET SODIUM [Suspect]
     Active Substance: FOSCARNET SODIUM
     Indication: Oral herpes
     Dosage: UNK
     Route: 065
  7. PRITELIVIR [Suspect]
     Active Substance: PRITELIVIR
     Indication: Oral herpes
     Dosage: UNK
     Route: 065
  8. PRITELIVIR [Suspect]
     Active Substance: PRITELIVIR
     Indication: Herpes simplex
  9. AMSACRINE [Suspect]
     Active Substance: AMSACRINE
     Indication: Chronic myelomonocytic leukaemia
     Dosage: RECEIVED FLAMSA-RIC REGIMEN
     Route: 065

REACTIONS (8)
  - Respiratory failure [Fatal]
  - Pneumonia viral [Fatal]
  - Renal impairment [Fatal]
  - Pulmonary toxicity [Fatal]
  - Herpes simplex [Recovered/Resolved]
  - Drug resistance [Unknown]
  - Drug ineffective [Unknown]
  - Off label use [Unknown]
